FAERS Safety Report 5670660-6 (Version None)
Quarter: 2008Q1

REPORT INFORMATION
  Report Type: 
  Country: None (occurrence: None)
  Receive Date: 20080314
  Receipt Date: 20080314
  Transmission Date: 20080703
  Serious: Yes (Hospitalization)
  Sender: FDA-Public Use
  Company Number: None

PATIENT
  Sex: Female
  Weight: 78.0187 kg

DRUGS (1)
  1. FEMARA [Suspect]
     Indication: BREAST CANCER
     Dosage: 2.5MG DAILY PO
     Route: 048
     Dates: start: 20070907, end: 20080303

REACTIONS (1)
  - ABDOMINAL HERNIA OBSTRUCTIVE [None]
